FAERS Safety Report 10439913 (Version 2)
Quarter: 2014Q3

REPORT INFORMATION
  Report Type: Spontaneous
  Country: US (occurrence: US)
  Receive Date: 20140908
  Receipt Date: 20140908
  Transmission Date: 20150326
  Serious: No
  Sender: FDA-Public Use
  Company Number: US-BRISTOL-MYERS SQUIBB COMPANY-19376425

PATIENT
  Age: 15 Year
  Sex: Female
  Weight: 53.06 kg

DRUGS (5)
  1. PROZAC [Concomitant]
     Active Substance: FLUOXETINE HYDROCHLORIDE
     Indication: BIPOLAR II DISORDER
  2. ABILIFY [Suspect]
     Active Substance: ARIPIPRAZOLE
     Indication: BIPOLAR DISORDER
     Dosage: INCREASED TO 10 MG,REDUCED TO 5 OR 2.5MG
     Route: 048
     Dates: start: 20130225, end: 20130909
  3. ABILIFY [Suspect]
     Active Substance: ARIPIPRAZOLE
     Indication: DEPRESSION
     Dosage: INCREASED TO 10 MG,REDUCED TO 5 OR 2.5MG
     Route: 048
     Dates: start: 20130225, end: 20130909
  4. COGENTIN [Concomitant]
     Active Substance: BENZTROPINE MESYLATE
  5. PROZAC [Concomitant]
     Active Substance: FLUOXETINE HYDROCHLORIDE
     Indication: POST-TRAUMATIC STRESS DISORDER

REACTIONS (2)
  - Extrapyramidal disorder [Recovered/Resolved]
  - Drug prescribing error [Unknown]

NARRATIVE: CASE EVENT DATE: 20130909
